FAERS Safety Report 8214552-7 (Version None)
Quarter: 2012Q1

REPORT INFORMATION
  Report Type: 
  Country: None (occurrence: None)
  Receive Date: 20120228
  Receipt Date: 20110103
  Transmission Date: 20120608
  Serious: Yes (Hospitalization)
  Sender: FDA-Public Use
  Company Number: RB-20205-2011

PATIENT
  Sex: Male

DRUGS (2)
  1. SUBOXONE [Suspect]
     Indication: DRUG DEPENDENCE
     Dosage: (12 MG QD TRANSPLACENTAL)
     Route: 064
     Dates: start: 20100301, end: 20100501
  2. SUBUTEX [Suspect]
     Indication: DRUG DEPENDENCE
     Dosage: (12 MG QD TRANSPLACENTAL)
     Route: 064
     Dates: start: 20100501, end: 20101201

REACTIONS (2)
  - DRUG WITHDRAWAL SYNDROME NEONATAL [None]
  - FOETAL EXPOSURE DURING PREGNANCY [None]
